FAERS Safety Report 25996292 (Version 1)
Quarter: 2025Q4

REPORT INFORMATION
  Report Type: Spontaneous
  Country: US (occurrence: US)
  Receive Date: 20251104
  Receipt Date: 20251104
  Transmission Date: 20260118
  Serious: No
  Sender: BAYER HEALTHCARE LLC
  Company Number: US-BAYER-2025A145834

PATIENT

DRUGS (1)
  1. ALEVE [Suspect]
     Active Substance: NAPROXEN SODIUM
     Indication: Osteoarthritis
     Dosage: 4 DF
     Route: 065

REACTIONS (2)
  - Drug effective for unapproved indication [Unknown]
  - Extra dose administered [Unknown]
